FAERS Safety Report 23517265 (Version 1)
Quarter: 2024Q1

REPORT INFORMATION
  Report Type: Spontaneous
  Country: DE (occurrence: DE)
  Receive Date: 20240213
  Receipt Date: 20240213
  Transmission Date: 20240410
  Serious: Yes (Other)
  Sender: FDA-Public Use
  Company Number: DE-THERAMEX-2023002314

PATIENT
  Age: 40 Year
  Sex: Female

DRUGS (2)
  1. ESTRADIOL [Suspect]
     Active Substance: ESTRADIOL
     Dates: start: 2021
  2. PROGESTERONE [Suspect]
     Active Substance: PROGESTERONE
     Indication: Product used for unknown indication

REACTIONS (4)
  - Mast cell activation syndrome [Unknown]
  - Blood oestrogen decreased [Unknown]
  - Histamine intolerance [Unknown]
  - Progesterone decreased [Unknown]
